FAERS Safety Report 5639536-4 (Version None)
Quarter: 2008Q1

REPORT INFORMATION
  Report Type: 
  Country: None (occurrence: None)
  Receive Date: 20080226
  Receipt Date: 20080219
  Transmission Date: 20080703
  Serious: Yes (Disabling, Other)
  Sender: FDA-Public Use
  Company Number: GB-PFIZER INC-2008015852

PATIENT
  Age: 59 Year
  Sex: Male
  Weight: 88 kg

DRUGS (5)
  1. ATORVASTATIN [Suspect]
     Indication: HYPERCHOLESTEROLAEMIA
     Route: 048
     Dates: start: 20080118, end: 20080123
  2. ASPIRIN [Concomitant]
     Route: 048
  3. BISOPROLOL FUMARATE [Concomitant]
     Dosage: TEXT:1.25 MG-FREQ:DAILY
     Route: 048
  4. CLOPIDOGREL [Concomitant]
     Route: 048
  5. PERINDOPRIL [Concomitant]
     Route: 048

REACTIONS (2)
  - MUSCLE SPASMS [None]
  - MYALGIA [None]
